FAERS Safety Report 4591426-4 (Version None)
Quarter: 2005Q1

REPORT INFORMATION
  Report Type: 
  Country: None (occurrence: None)
  Receive Date: 20050222
  Receipt Date: 20050214
  Transmission Date: 20050727
  Serious: Yes (Hospitalization)
  Sender: FDA-Public Use
  Company Number: 2004UW13513

PATIENT
  Age: 69 Year
  Sex: Male
  Weight: 79.3795 kg

DRUGS (7)
  1. IRESSA [Suspect]
     Indication: SQUAMOUS CELL CARCINOMA
     Dosage: 250 MG OR 500 MG
     Dates: start: 20040506, end: 20040623
  2. PROTONIX [Concomitant]
  3. NORVASC [Concomitant]
  4. GLUCOTROL [Concomitant]
  5. OXYCODONE HCL [Concomitant]
  6. OXYFAST [Concomitant]
  7. BENADRYL ^ACHE^ [Concomitant]

REACTIONS (5)
  - ABASIA [None]
  - COORDINATION ABNORMAL [None]
  - DYSKINESIA [None]
  - DYSTONIA [None]
  - HEADACHE [None]
